FAERS Safety Report 16776102 (Version 1)
Quarter: 2019Q3

REPORT INFORMATION
  Report Type: Spontaneous
  Country: DE (occurrence: DE)
  Receive Date: 20190905
  Receipt Date: 20190905
  Transmission Date: 20191005
  Serious: Yes (Other)
  Sender: FDA-Public Use
  Company Number: DE-TEVA-2019-DE-1102704

PATIENT
  Age: 15 Year
  Sex: Male

DRUGS (10)
  1. IFOSFAMIDE. [Suspect]
     Active Substance: IFOSFAMIDE
     Indication: SARCOMA
  2. VINCRISTINE [Concomitant]
     Active Substance: VINCRISTINE
     Indication: PARANEOPLASTIC NEUROLOGICAL SYNDROME
     Dosage: RECEIVED TEN DOSES (1.5MG/M2, MAXIMAL DOSE 2 MG)
     Route: 065
  3. ACTINOMYCIN D [Concomitant]
     Active Substance: DACTINOMYCIN
     Indication: SARCOMA
  4. IFOSFAMIDE. [Suspect]
     Active Substance: IFOSFAMIDE
     Indication: PARANEOPLASTIC NEUROLOGICAL SYNDROME
     Dosage: ADDITIONAL INFO: VAIA POLYCHEMOTHERAPY
     Route: 065
  5. INTRAVENOUS IMMUNOGLOBULIN [Suspect]
     Active Substance: HUMAN IMMUNOGLOBULIN G
     Indication: POLYNEUROPATHY IN MALIGNANT DISEASE
     Dosage: 2G/KG AT WEEK SIX AND EIGHT
     Route: 042
  6. DOXORUBICIN [Suspect]
     Active Substance: DOXORUBICIN
     Indication: SARCOMA
  7. ACTINOMYCIN D [Concomitant]
     Active Substance: DACTINOMYCIN
     Indication: PARANEOPLASTIC NEUROLOGICAL SYNDROME
     Route: 065
  8. VINCRISTINE [Concomitant]
     Active Substance: VINCRISTINE
     Indication: SARCOMA
  9. DOXORUBICIN [Suspect]
     Active Substance: DOXORUBICIN
     Indication: PARANEOPLASTIC NEUROLOGICAL SYNDROME
     Dosage: ADDITIONAL INFO: VAIA POLYCHEMOTHERAPY
     Route: 065
  10. METHYLPREDNISOLONE. [Suspect]
     Active Substance: METHYLPREDNISOLONE
     Indication: POLYNEUROPATHY IN MALIGNANT DISEASE
     Route: 065

REACTIONS (8)
  - Hallucination [Unknown]
  - Nephropathy [Unknown]
  - Cardiomyopathy [Unknown]
  - Somnolence [Unknown]
  - Electrolyte imbalance [Unknown]
  - Drug ineffective [Unknown]
  - Dizziness [Unknown]
  - Encephalopathy [Unknown]
